FAERS Safety Report 24844990 (Version 3)
Quarter: 2025Q1

REPORT INFORMATION
  Report Type: Spontaneous
  Country: PY (occurrence: PY)
  Receive Date: 20250115
  Receipt Date: 20250217
  Transmission Date: 20250409
  Serious: Yes (Death, Hospitalization)
  Sender: CSL BEHRING
  Company Number: PY-ROCHE-10000172272

PATIENT
  Age: 77 Year
  Sex: Male

DRUGS (14)
  1. MIRCERA [Suspect]
     Active Substance: METHOXY POLYETHYLENE GLYCOL-EPOETIN BETA
     Indication: Anaemia
     Dosage: 100 ?G, QMT
     Route: 058
     Dates: start: 20231220, end: 20241025
  2. MIRCERA [Suspect]
     Active Substance: METHOXY POLYETHYLENE GLYCOL-EPOETIN BETA
     Indication: Chronic kidney disease
  3. VITAMINS NOS [Concomitant]
     Active Substance: VITAMINS
     Indication: Product used for unknown indication
  4. NPH INSULIN [Concomitant]
     Active Substance: INSULIN BEEF
     Indication: Product used for unknown indication
  5. AMLODIPINE [Concomitant]
     Active Substance: AMLODIPINE BESYLATE
     Indication: Product used for unknown indication
     Dosage: 10 MG, QD
  6. ALDOPA [Concomitant]
     Indication: Hypertension
     Dosage: 500 MG, BID
  7. FOLIC ACID [Concomitant]
     Active Substance: FOLIC ACID
     Indication: Product used for unknown indication
     Dosage: 10 MG, QD
  8. FLUOXETINE [Concomitant]
     Active Substance: FLUOXETINE HYDROCHLORIDE
     Indication: Product used for unknown indication
     Dosage: 20 MG, QD
  9. TAMSULOSIN [Concomitant]
     Active Substance: TAMSULOSIN
     Indication: Product used for unknown indication
     Dosage: 0.4 ?G, QD
  10. SIMETHICONE (DIMETHICONE) [Concomitant]
     Active Substance: DIMETHICONE
     Indication: Product used for unknown indication
     Dosage: 40 DRP (1/12 MILLILITRE), TID (AS NEEDED)
  11. CIPROFIBRATE [Concomitant]
     Active Substance: CIPROFIBRATE
     Indication: Product used for unknown indication
     Dosage: 100 MG, QD
  12. POTASSIUM [Concomitant]
     Active Substance: POTASSIUM
     Indication: Product used for unknown indication
     Dosage: UNK, BID
  13. AMINO ACIDS, SOURCE UNSPECIFIED [Concomitant]
     Active Substance: AMINO ACIDS, SOURCE UNSPECIFIED
     Indication: Product used for unknown indication
     Dosage: UNK, BID (1 MEASUREMENT AT BREAKFAST OR DINNER)
  14. Vancap [Concomitant]
     Indication: Product used for unknown indication

REACTIONS (3)
  - Septic shock [Fatal]
  - Ill-defined disorder [Unknown]
  - Diarrhoea [Unknown]

NARRATIVE: CASE EVENT DATE: 20241126
